FAERS Safety Report 6671710-0 (Version None)
Quarter: 2010Q2

REPORT INFORMATION
  Report Type: 
  Country: None (occurrence: None)
  Receive Date: 20100407
  Receipt Date: 20100330
  Transmission Date: 20101027
  Serious: Yes (Other)
  Sender: FDA-Public Use
  Company Number: PHHY2010JP20019

PATIENT
  Age: 40 Year
  Sex: Female

DRUGS (5)
  1. VOLTAREN [Suspect]
     Route: 048
  2. TIZANIDINE HCL [Suspect]
     Route: 048
  3. DEPAS [Suspect]
     Route: 048
  4. HALCION [Suspect]
     Route: 048
  5. AMLODIPINE BESYLATE [Suspect]
     Route: 048

REACTIONS (2)
  - OVERDOSE [None]
  - PANCREATITIS [None]
